FAERS Safety Report 6215956-4 (Version None)
Quarter: 2009Q2

REPORT INFORMATION
  Report Type: 
  Country: None (occurrence: None)
  Receive Date: 20090603
  Receipt Date: 20090519
  Transmission Date: 20091009
  Serious: Yes (Hospitalization)
  Sender: FDA-Public Use
  Company Number: 2009-190569-NL

PATIENT
  Age: 32 Year
  Sex: Female

DRUGS (4)
  1. ETONOGESTREL [Suspect]
     Indication: CONTRACEPTION
     Dosage: DF;
     Dates: start: 20030101
  2. ETONOGESTREL [Suspect]
     Dates: end: 20060101
  3. ETONOGESTREL [Suspect]
     Dates: start: 20090122, end: 20090202
  4. ETONOGESTREL [Suspect]
     Dates: start: 20090126, end: 20090129

REACTIONS (6)
  - EMBOLISM [None]
  - HYPOAESTHESIA [None]
  - IMPLANT SITE HYPERSENSITIVITY [None]
  - PERIPHERAL ARTERIAL OCCLUSIVE DISEASE [None]
  - PERIPHERAL EMBOLISM [None]
  - PERIPHERAL ISCHAEMIA [None]
